FAERS Safety Report 22013121 (Version 1)
Quarter: 2023Q1

REPORT INFORMATION
  Report Type: Spontaneous
  Country: HU (occurrence: US)
  Receive Date: 20230220
  Receipt Date: 20230220
  Transmission Date: 20230418
  Serious: Yes (Other)
  Sender: FDA-Public Use
  Company Number: HU-GLAXOSMITHKLINE-US2023GSK025813

PATIENT

DRUGS (1)
  1. WELLBUTRIN XL [Suspect]
     Active Substance: BUPROPION HYDROCHLORIDE
     Indication: Product used for unknown indication
     Dosage: UNK

REACTIONS (7)
  - Suicidal ideation [Unknown]
  - Anger [Unknown]
  - Personality change [Unknown]
  - Insurance issue [Unknown]
  - Inability to afford medication [Unknown]
  - Product counterfeit [Unknown]
  - Product distribution issue [Unknown]
